FAERS Safety Report 7028564-2 (Version None)
Quarter: 2010Q4

REPORT INFORMATION
  Report Type: 
  Country: None (occurrence: None)
  Receive Date: 20101005
  Receipt Date: 20100928
  Transmission Date: 20110411
  Serious: Yes (Disabling)
  Sender: FDA-Public Use
  Company Number: JP-ABBOTT-09P-087-0601050-00

PATIENT
  Sex: Female

DRUGS (14)
  1. HUMIRA [Suspect]
     Indication: RHEUMATOID ARTHRITIS
     Route: 058
     Dates: start: 20090623, end: 20090929
  2. PREDNISONE [Concomitant]
     Indication: RHEUMATOID ARTHRITIS
     Route: 048
     Dates: start: 20091112, end: 20091114
  3. PREDNISONE [Concomitant]
     Indication: GUILLAIN-BARRE SYNDROME
     Route: 048
     Dates: start: 20091115, end: 20091117
  4. PREDNISONE [Concomitant]
     Route: 048
     Dates: start: 20091118, end: 20091120
  5. PREDNISONE [Concomitant]
     Route: 048
     Dates: start: 20091121, end: 20091123
  6. PREDNISONE [Concomitant]
     Route: 048
     Dates: start: 20091124, end: 20091126
  7. LANSOPRAZOLE [Concomitant]
     Indication: PRODUCT USED FOR UNKNOWN INDICATION
     Dosage: 15 MG DAILY
     Route: 048
     Dates: start: 20090317
  8. NORVASC [Concomitant]
     Indication: PRODUCT USED FOR UNKNOWN INDICATION
     Dosage: 5 MG DAILY
     Route: 048
     Dates: start: 20031029, end: 20080627
  9. NORVASC [Concomitant]
     Dates: start: 20080627, end: 20090317
  10. TEPRENONE [Concomitant]
     Indication: PRODUCT USED FOR UNKNOWN INDICATION
     Dosage: 100 MG DAILY
     Route: 048
     Dates: start: 20060915
  11. DICLOFENAC SODIUM [Concomitant]
     Indication: RHEUMATOID ARTHRITIS
     Dosage: 75 MG DAILY
     Route: 048
     Dates: start: 20090413, end: 20091005
  12. AMLODIPINE [Concomitant]
     Indication: PRODUCT USED FOR UNKNOWN INDICATION
     Route: 048
     Dates: start: 20090317
  13. PREDNISOLONE SODIUM SUCCINATE INJ [Concomitant]
     Indication: RHEUMATOID ARTHRITIS
     Route: 042
     Dates: start: 20091109, end: 20091111
  14. PREDNISOLONE SODIUM SUCCINATE INJ [Concomitant]
     Indication: GUILLAIN-BARRE SYNDROME

REACTIONS (4)
  - HENOCH-SCHONLEIN PURPURA [None]
  - NERVOUS SYSTEM DISORDER [None]
  - VASCULITIS [None]
  - VASCULITIS NECROTISING [None]
